FAERS Safety Report 13102163 (Version 1)
Quarter: 2017Q1

REPORT INFORMATION
  Report Type: Spontaneous
  Country: AU (occurrence: AU)
  Receive Date: 20170110
  Receipt Date: 20170110
  Transmission Date: 20170428
  Serious: No
  Sender: FDA-Public Use
  Company Number: AU-TOLMAR, INC.-2016AU000736

PATIENT
  Sex: Male

DRUGS (1)
  1. ELIGARD [Suspect]
     Active Substance: LEUPROLIDE ACETATE
     Indication: PROSTATE CANCER
     Dosage: 22.5 MG, Q3MONTHS
     Route: 065
     Dates: start: 20151029

REACTIONS (7)
  - Diarrhoea [Recovering/Resolving]
  - Limb injury [Recovering/Resolving]
  - Muscle spasms [Recovering/Resolving]
  - Condition aggravated [Recovering/Resolving]
  - Hot flush [Recovering/Resolving]
  - Abdominal pain upper [Recovering/Resolving]
  - Fall [Recovering/Resolving]

NARRATIVE: CASE EVENT DATE: 2015
